FAERS Safety Report 4687062-1 (Version None)
Quarter: 2005Q2

REPORT INFORMATION
  Report Type: 
  Country: None (occurrence: None)
  Receive Date: 20050608
  Receipt Date: 20050524
  Transmission Date: 20051028
  Serious: Yes (Hospitalization)
  Sender: FDA-Public Use
  Company Number: DSA_26479_2005

PATIENT
  Age: 43 Year
  Sex: Female

DRUGS (3)
  1. TAVOR [Suspect]
     Dates: start: 20050504, end: 20050504
  2. CITALOPRAM [Suspect]
     Dates: start: 20050504, end: 20050504
  3. STANGYL [Suspect]
     Dosage: 100 TAB ONCE PO
     Route: 048
     Dates: start: 20050504, end: 20050504

REACTIONS (8)
  - ACIDOSIS [None]
  - CARDIOGENIC SHOCK [None]
  - COMA [None]
  - HYPOTENSION [None]
  - INTENTIONAL MISUSE [None]
  - MULTIPLE DRUG OVERDOSE [None]
  - TACHYCARDIA [None]
  - VOMITING [None]
